FAERS Safety Report 8966704 (Version 8)
Quarter: 2013Q2

REPORT INFORMATION
  Report Type: Report from Study
  Country: US (occurrence: US)
  Receive Date: 20121214
  Receipt Date: 20130506
  Transmission Date: 20140414
  Serious: Yes (Hospitalization)
  Sender: FDA-Public Use
  Company Number: US-009507513-1212USA002188

PATIENT
  Age: 69 Year
  Sex: Female
  Weight: 90 kg

DRUGS (9)
  1. VORINOSTAT [Suspect]
     Indication: GLIOBLASTOMA MULTIFORME
     Dosage: 300 MG ON DAYS 1-5, WEEKLY
     Route: 048
     Dates: start: 20120820
  2. VORINOSTAT [Suspect]
     Dosage: 400 MG ON DAYS 1-7 AND 15-21 CYCLE 3-13= 28 DAYS EACH (MAX=12 CYCLES)
     Route: 048
     Dates: start: 20121126, end: 20121201
  3. VORINOSTAT [Suspect]
     Dosage: 400 MG ON DAYS 1-7 AND 15-21 CYCLE 3-13= 28 DAYS EACH (MAX=12 CYCLES)
     Route: 048
     Dates: start: 20130121
  4. VORINOSTAT [Suspect]
     Dosage: 400 MG ON DAYS 1-7 AND 15-21 CYCLE 3-13= 28 DAYS EACH (MAX=12 CYCLES)
     Route: 048
     Dates: start: 20130318
  5. VORINOSTAT [Suspect]
     Dosage: 300 MG, QD
     Route: 048
     Dates: start: 20130401, end: 20130407
  6. TEMOZOLOMIDE [Suspect]
     Indication: GLIOBLASTOMA MULTIFORME
     Dosage: 75 MG/M2, QD
     Route: 048
     Dates: start: 20120820
  7. TEMOZOLOMIDE [Suspect]
     Dosage: 150 MG/M2 ON DAYS 1-5 CYCLE 3-13= 28 DAYS EACH (MAX=12 CYCLES)
     Route: 048
     Dates: start: 20121126, end: 20121130
  8. TEMOZOLOMIDE [Suspect]
     Dosage: 200 MG/M2 ON DAYS 1-5 CYCLE 3-13= 28 DAYS EACH (MAX=12 CYCLES)
     Route: 048
     Dates: start: 20130121
  9. TEMOZOLOMIDE [Suspect]
     Dosage: 200 MG/M2 ON DAYS 1-5 CYCLE 3-13= 28 DAYS EACH (MAX=12 CYCLES)
     Route: 048
     Dates: start: 20130318, end: 20130324

REACTIONS (11)
  - Blood creatinine increased [Recovering/Resolving]
  - Lipase increased [Recovered/Resolved with Sequelae]
  - Dehydration [Recovered/Resolved with Sequelae]
  - Diarrhoea [Recovered/Resolved with Sequelae]
  - Dehydration [Recovered/Resolved]
  - Influenza like illness [Recovered/Resolved]
  - Hypotension [Recovering/Resolving]
  - Diarrhoea [Recovering/Resolving]
  - Dehydration [Recovering/Resolving]
  - Vomiting [Recovering/Resolving]
  - Abdominal pain [Recovering/Resolving]
